FAERS Safety Report 9776051 (Version 1)
Quarter: 2013Q4

REPORT INFORMATION
  Report Type: Spontaneous
  Country: SE (occurrence: SE)
  Receive Date: 20131220
  Receipt Date: 20131220
  Transmission Date: 20140711
  Serious: Yes (Hospitalization)
  Sender: FDA-Public Use
  Company Number: SE-TEVA-451789ISR

PATIENT
  Age: 25 Year
  Sex: Male

DRUGS (5)
  1. OXASCAND [Suspect]
  2. SERTRALINE [Suspect]
  3. RITALIN [Suspect]
  4. STRATTERA [Suspect]
  5. IMOVANE [Suspect]

REACTIONS (1)
  - Toxicity to various agents [Unknown]
